FAERS Safety Report 6458893-2 (Version None)
Quarter: 2009Q4

REPORT INFORMATION
  Report Type: 
  Country: None (occurrence: None)
  Receive Date: 20091125
  Receipt Date: 20091125
  Transmission Date: 20100525
  Serious: Yes (Hospitalization)
  Sender: FDA-Public Use
  Company Number: None

PATIENT
  Sex: Male
  Weight: 77.1115 kg

DRUGS (2)
  1. QUETIAPINE FUMARATE [Suspect]
     Indication: SCHIZOAFFECTIVE DISORDER
     Dosage: 900 MG DAY PO
     Route: 048
     Dates: start: 20090327, end: 20090602
  2. CLOZAPINE [Suspect]
     Dosage: 325 MG DAY PO
     Route: 048
     Dates: start: 20090506, end: 20090602

REACTIONS (1)
  - LETHARGY [None]
